FAERS Safety Report 14685993 (Version 1)
Quarter: 2018Q1

REPORT INFORMATION
  Report Type: Spontaneous
  Country: US (occurrence: US)
  Receive Date: 20180326
  Receipt Date: 20180326
  Transmission Date: 20180509
  Serious: No
  Sender: FDA-Public Use
  Company Number: None

PATIENT
  Sex: Male

DRUGS (2)
  1. MORPHINE 15MG [Suspect]
     Active Substance: MORPHINE
  2. MORPHINE [Suspect]
     Active Substance: MORPHINE

REACTIONS (4)
  - Confusional state [None]
  - Cognitive disorder [None]
  - Fatigue [None]
  - Drug ineffective [None]
